FAERS Safety Report 5706548-1 (Version None)
Quarter: 2008Q2

REPORT INFORMATION
  Report Type: 
  Country: None (occurrence: None)
  Receive Date: 20080415
  Receipt Date: 20080403
  Transmission Date: 20081010
  Serious: Yes (Death)
  Sender: FDA-Public Use
  Company Number: GR-ELI_LILLY_AND_COMPANY-GR200804001442

PATIENT
  Sex: Female

DRUGS (5)
  1. GEMZAR [Suspect]
     Indication: OVARIAN EPITHELIAL CANCER
     Dosage: 1500 MG/M2 AS 30 MIN INFUSION, ON DAYS 1 AND 8 EVERY 21 DAYS
     Route: 042
  2. ELOXATIN [Concomitant]
     Indication: OVARIAN EPITHELIAL CANCER
     Dosage: 130 MG/M2 ON DAY 8, AS 4 H INFUSION, EVERY 21 DAYS
     Route: 042
  3. ONDANSETRON [Concomitant]
     Indication: PROPHYLAXIS OF NAUSEA AND VOMITING
     Dosage: 16 MG, 30 MIN BEFORE CHEMOTHERAPY
     Route: 042
  4. DEXAMETHASONE [Concomitant]
     Indication: PROPHYLAXIS OF NAUSEA AND VOMITING
     Dosage: 8 MG, 30 MIN BEFORE CHEMOTHERAPY
     Route: 042
  5. DIAZEPAM [Concomitant]
     Indication: PROPHYLAXIS OF NAUSEA AND VOMITING
     Dosage: 5 MG, 30 MIN BEFORE CHEMOTHERAPY
     Route: 042

REACTIONS (1)
  - SEPSIS [None]
